FAERS Safety Report 19230112 (Version 1)
Quarter: 2021Q2

REPORT INFORMATION
  Report Type: Spontaneous
  Country: BE (occurrence: BE)
  Receive Date: 20210507
  Receipt Date: 20210507
  Transmission Date: 20210717
  Serious: Yes (Other)
  Sender: FDA-Public Use
  Company Number: BE-SA-2021SA148092

PATIENT
  Sex: Male

DRUGS (2)
  1. FABRAZYME [Suspect]
     Active Substance: AGALSIDASE BETA
     Dosage: UNK
     Route: 042
     Dates: start: 202009
  2. FABRAZYME [Suspect]
     Active Substance: AGALSIDASE BETA
     Dosage: UNK
     Route: 042
     Dates: start: 201907, end: 202003

REACTIONS (3)
  - Seizure [Unknown]
  - Discomfort [Unknown]
  - Angioedema [Unknown]

NARRATIVE: CASE EVENT DATE: 20210429
